FAERS Safety Report 17644192 (Version 5)
Quarter: 2020Q3

REPORT INFORMATION
  Report Type: Report from Study
  Country: US (occurrence: US)
  Receive Date: 20200408
  Receipt Date: 20200819
  Transmission Date: 20201102
  Serious: Yes (Other)
  Sender: FDA-Public Use
  Company Number: NVSC2020US094008

PATIENT
  Sex: Male

DRUGS (4)
  1. COSENTYX [Suspect]
     Active Substance: SECUKINUMAB
     Route: 058
  2. COSENTYX [Suspect]
     Active Substance: SECUKINUMAB
     Dosage: 300 MG, Q4W
     Route: 058
  3. COSENTYX [Suspect]
     Active Substance: SECUKINUMAB
     Dosage: 300 MG ONCE WEEKLY FOR 5 WEEKS AND THEN ONCE EVERY 4 WEEKS
     Route: 058
  4. COSENTYX [Suspect]
     Active Substance: SECUKINUMAB
     Indication: ANKYLOSING SPONDYLITIS
     Dosage: 300 MG, QW(FOR 5 WEEKS)
     Route: 058
     Dates: start: 2019

REACTIONS (3)
  - Ankylosing spondylitis [Unknown]
  - Therapeutic product effect decreased [Not Recovered/Not Resolved]
  - Rash [Recovered/Resolved]
